FAERS Safety Report 7326183-1 (Version None)
Quarter: 2011Q1

REPORT INFORMATION
  Report Type: 
  Country: None (occurrence: None)
  Receive Date: 20110302
  Receipt Date: 20100222
  Transmission Date: 20110831
  Serious: No
  Sender: FDA-Public Use
  Company Number: US-ABBOTT-10P-163-0628602-00

PATIENT
  Sex: Female
  Weight: 74.002 kg

DRUGS (4)
  1. DEPAKENE [Suspect]
     Indication: BIPOLAR DISORDER
     Route: 048
     Dates: start: 20091207, end: 20100210
  2. DEPAKENE [Suspect]
     Indication: PARANOIA
  3. DEPAKENE [Suspect]
     Indication: SCHIZOPHRENIA
     Route: 048
     Dates: start: 20100216
  4. RISPERDAL [Concomitant]
     Indication: PRODUCT USED FOR UNKNOWN INDICATION
     Route: 050

REACTIONS (4)
  - AGGRESSION [None]
  - MOOD ALTERED [None]
  - HALLUCINATION [None]
  - SCREAMING [None]
